FAERS Safety Report 21804508 (Version 1)
Quarter: 2023Q1

REPORT INFORMATION
  Report Type: Spontaneous
  Country: US (occurrence: US)
  Receive Date: 20230102
  Receipt Date: 20230102
  Transmission Date: 20230418
  Serious: No
  Sender: FDA-Public Use
  Company Number: US-TEVA-2022-US-2837846

PATIENT
  Sex: Female

DRUGS (9)
  1. QNASL [Suspect]
     Active Substance: BECLOMETHASONE DIPROPIONATE
     Indication: Hypersensitivity
     Dosage: ONE PUFF IN EACH NOSTRIL
     Route: 045
     Dates: start: 20180101
  2. QNASL [Suspect]
     Active Substance: BECLOMETHASONE DIPROPIONATE
     Indication: Paranasal sinus inflammation
  3. LINZESS [Concomitant]
     Active Substance: LINACLOTIDE
     Indication: Dyspepsia
     Dosage: STARTED 4-5 YEARS AGO
     Route: 065
  4. Dexillant [Concomitant]
     Indication: Dyspepsia
     Dosage: STARTED 4-5 YEARS AGO
     Route: 065
  5. TYLENOL EXTRA STRENGTH [Concomitant]
     Active Substance: ACETAMINOPHEN
     Indication: Pain
     Route: 065
     Dates: start: 20120101
  6. MYRBETRIQ [Concomitant]
     Active Substance: MIRABEGRON
     Indication: Urinary incontinence
     Route: 065
     Dates: start: 20180101
  7. Zircast [Concomitant]
     Indication: Hypersensitivity
     Route: 065
     Dates: start: 20090101
  8. ALLEGRA [Concomitant]
     Active Substance: FEXOFENADINE HYDROCHLORIDE
     Indication: Hypersensitivity
     Route: 065
     Dates: start: 20070101
  9. RESTASIS [Concomitant]
     Active Substance: CYCLOSPORINE
     Indication: Dry eye
     Route: 065
     Dates: start: 20180101

REACTIONS (3)
  - Ear inflammation [Unknown]
  - Ear discomfort [Unknown]
  - Nasal inflammation [Unknown]
